FAERS Safety Report 5199938-X (Version None)
Quarter: 2007Q1

REPORT INFORMATION
  Report Type: 
  Country: None (occurrence: None)
  Receive Date: 20070103
  Receipt Date: 20061219
  Transmission Date: 20070707
  Serious: Yes (Hospitalization)
  Sender: FDA-Public Use
  Company Number: 2006BI017033

PATIENT
  Age: 44 Year
  Sex: Female
  Weight: 72.5755 kg

DRUGS (1)
  1. AVONEX [Suspect]
     Indication: MULTIPLE SCLEROSIS
     Dosage: 15 UG;QW;IM
     Route: 030
     Dates: start: 20031201, end: 20040601

REACTIONS (5)
  - ADDISON'S DISEASE [None]
  - ENDOCRINE DISORDER [None]
  - HYPOTENSION [None]
  - POSTURAL ORTHOSTATIC TACHYCARDIA SYNDROME [None]
  - TACHYCARDIA [None]
